FAERS Safety Report 25063941 (Version 1)
Quarter: 2025Q1

REPORT INFORMATION
  Report Type: Spontaneous
  Country: DE (occurrence: DE)
  Receive Date: 20250311
  Receipt Date: 20250311
  Transmission Date: 20250409
  Serious: Yes (Disabling, Other)
  Sender: BAYER HEALTHCARE PHARMACEUTICALS INC.
  Company Number: DE-BAYER-2025A030051

PATIENT
  Age: 45 Year
  Sex: Male
  Weight: 83 kg

DRUGS (12)
  1. ADEMPAS [Suspect]
     Active Substance: RIOCIGUAT
     Indication: Pulmonary arterial hypertension
     Dates: start: 201905
  2. SOTATERCEPT [Suspect]
     Active Substance: SOTATERCEPT
     Indication: Pulmonary arterial hypertension
     Route: 058
     Dates: start: 20241126, end: 20250226
  3. SOTATERCEPT [Suspect]
     Active Substance: SOTATERCEPT
     Indication: Pulmonary arterial hypertension
  4. MACITENTAN [Concomitant]
     Active Substance: MACITENTAN
     Indication: Pulmonary arterial hypertension
     Dates: start: 201702
  5. SELEXIPAG [Concomitant]
     Active Substance: SELEXIPAG
     Indication: Pulmonary arterial hypertension
     Dates: start: 201705
  6. AMITRIPTYLINE [Concomitant]
     Active Substance: AMITRIPTYLINE
  7. PANTOPRAZOLE [Concomitant]
     Active Substance: PANTOPRAZOLE
  8. PANTOPRAZOLE [Concomitant]
     Active Substance: PANTOPRAZOLE
  9. EPLERENONE [Concomitant]
     Active Substance: EPLERENONE
  10. IVABRADINE [Concomitant]
     Active Substance: IVABRADINE
  11. FOSTER [Concomitant]
     Active Substance: BECLOMETHASONE\FORMOTEROL
  12. OXYGEN [Concomitant]
     Active Substance: OXYGEN
     Dates: start: 2022

REACTIONS (6)
  - Visual impairment [Not Recovered/Not Resolved]
  - Central serous chorioretinopathy [None]
  - Vogt-Koyanagi-Harada disease [Recovered/Resolved with Sequelae]
  - Blindness [None]
  - Visual impairment [Not Recovered/Not Resolved]
  - Retinal detachment [Recovered/Resolved with Sequelae]

NARRATIVE: CASE EVENT DATE: 20240101
